FAERS Safety Report 10682056 (Version 2)
Quarter: 2015Q1

REPORT INFORMATION
  Report Type: Spontaneous
  Country: IT (occurrence: None)
  Receive Date: 20141224
  Receipt Date: 20150114
  Transmission Date: 20150720
  Serious: Yes (Other)
  Sender: FDA-Public Use
  Company Number: 2014PRN00037

PATIENT
  Age: 68 Year
  Sex: Female

DRUGS (2)
  1. PAROXETINE (PAROXETINE) [Suspect]
     Active Substance: PAROXETINE HYDROCHLORIDE
  2. RHODIOLA ROSEA [Suspect]
     Active Substance: HERBALS
     Route: 048

REACTIONS (4)
  - Overdose [None]
  - Apallic syndrome [None]
  - Serotonin syndrome [None]
  - Drug interaction [None]
